FAERS Safety Report 6107763-8 (Version None)
Quarter: 2009Q1

REPORT INFORMATION
  Report Type: 
  Country: None (occurrence: None)
  Receive Date: 20090309
  Receipt Date: 20090303
  Transmission Date: 20090719
  Serious: Yes (Hospitalization, Other)
  Sender: FDA-Public Use
  Company Number: B0528739A

PATIENT
  Age: 77 Year
  Sex: Male

DRUGS (1)
  1. SERETIDE [Suspect]
     Indication: ASTHMA
     Dosage: 2PUFF TWICE PER DAY
     Route: 055
     Dates: start: 20030101

REACTIONS (3)
  - DYSPNOEA [None]
  - STAPHYLOCOCCAL INFECTION [None]
  - TENDON RUPTURE [None]
